FAERS Safety Report 10330928 (Version 1)
Quarter: 2014Q3

REPORT INFORMATION
  Report Type: Spontaneous
  Country: US (occurrence: None)
  Receive Date: 20140721
  Receipt Date: 20140721
  Transmission Date: 20150326
  Serious: Yes (Hospitalization)
  Sender: FDA-Public Use
  Company Number: None

PATIENT
  Age: 64 Year
  Sex: Male
  Weight: 127 kg

DRUGS (2)
  1. ALLOPURINOL. [Suspect]
     Active Substance: ALLOPURINOL
     Indication: BLOOD URIC ACID INCREASED
     Route: 048
     Dates: start: 20140122, end: 20140207
  2. ALLOPURINOL. [Suspect]
     Active Substance: ALLOPURINOL
     Indication: GOUT
     Route: 048
     Dates: start: 20140122, end: 20140207

REACTIONS (9)
  - Hepatic enzyme increased [None]
  - Eosinophilia [None]
  - Blood urea increased [None]
  - Hypotension [None]
  - Pyrexia [None]
  - Respiratory distress [None]
  - Rash [None]
  - Meningitis aseptic [None]
  - Renal failure acute [None]

NARRATIVE: CASE EVENT DATE: 20140207
